FAERS Safety Report 9927416 (Version 2)
Quarter: 2014Q1

REPORT INFORMATION
  Report Type: Spontaneous
  Country: US (occurrence: US)
  Receive Date: 20140226
  Receipt Date: 20140326
  Transmission Date: 20141002
  Serious: Yes (Other)
  Sender: FDA-Public Use
  Company Number: US-JNJFOC-20140209145

PATIENT
  Age: 73 Year
  Sex: Male
  Weight: 81.65 kg

DRUGS (6)
  1. BENADRYL ALLERGY [Suspect]
     Indication: SLEEP DISORDER THERAPY
     Dosage: NIGHTLY AT 9PM
     Route: 048
     Dates: start: 20140206, end: 20140212
  2. BAYER ASPIRIN [Concomitant]
     Indication: CARDIAC DISORDER
     Route: 065
     Dates: start: 20061010
  3. AMLODIPINE [Concomitant]
     Indication: HYPERTENSION
     Dosage: 3 YEARS AGO
     Route: 065
  4. COREG [Concomitant]
     Indication: HYPERTENSION
     Dosage: 2 YEARS AGO
     Route: 065
  5. SIMVASTATIN [Concomitant]
     Indication: BLOOD CHOLESTEROL
     Dosage: 3 YEARS AGO
     Route: 065
  6. DOXAZOSIN [Concomitant]
     Indication: PROPHYLAXIS
     Dosage: 5 YEARS AGO
     Route: 065

REACTIONS (1)
  - Hypotension [Not Recovered/Not Resolved]
